FAERS Safety Report 9748296 (Version 1)
Quarter: 2013Q4

REPORT INFORMATION
  Report Type: Spontaneous
  Country: NL (occurrence: NL)
  Receive Date: 20131212
  Receipt Date: 20131212
  Transmission Date: 20140711
  Serious: Yes (Other)
  Sender: FDA-Public Use
  Company Number: PHHY2013NL140601

PATIENT
  Age: 67 Year
  Sex: Female

DRUGS (1)
  1. EMSELEX MODIFIED RELEASE [Suspect]
     Indication: HYPERTONIC BLADDER
     Dosage: UNK UKN, UNK
     Route: 048

REACTIONS (1)
  - Urinary tract infection [Unknown]
